FAERS Safety Report 16667596 (Version 1)
Quarter: 2019Q3

REPORT INFORMATION
  Report Type: Spontaneous
  Country: CA (occurrence: CA)
  Receive Date: 20190805
  Receipt Date: 20190805
  Transmission Date: 20191004
  Serious: Yes (Other)
  Sender: FDA-Public Use
  Company Number: CA-PFIZER INC-2019330394

PATIENT
  Age: 64 Year
  Sex: Male

DRUGS (5)
  1. CIPROFLOXACIN. [Concomitant]
     Active Substance: CIPROFLOXACIN
     Dosage: UNK
  2. MEROPENEM. [Suspect]
     Active Substance: MEROPENEM
     Dosage: UNK
     Route: 065
  3. FLAGYL [Concomitant]
     Active Substance: METRONIDAZOLE\METRONIDAZOLE HYDROCHLORIDE
     Dosage: UNK
  4. ALBUREX [Suspect]
     Active Substance: ALBUMIN HUMAN
     Dosage: 100 ML, UNK
     Route: 065
  5. VANCOMYCIN [Concomitant]
     Active Substance: VANCOMYCIN
     Dosage: UNK

REACTIONS (8)
  - Chills [Recovered/Resolved]
  - Tachycardia [Recovered/Resolved]
  - Transfusion reaction [Recovered/Resolved]
  - Product contamination [Recovered/Resolved]
  - Body temperature increased [Recovered/Resolved]
  - Fluid overload [Recovered/Resolved]
  - Hypotension [Recovered/Resolved]
  - Acute myocardial infarction [Recovered/Resolved]
